FAERS Safety Report 18328023 (Version 1)
Quarter: 2020Q3

REPORT INFORMATION
  Report Type: Spontaneous
  Country: RO (occurrence: RO)
  Receive Date: 20200929
  Receipt Date: 20200929
  Transmission Date: 20201103
  Serious: Yes (Death, Life-Threatening, Hospitalization, Other)
  Sender: FDA-Public Use
  Company Number: RO-BAXTER-2020BAX016568

PATIENT
  Age: 68 Year
  Sex: Female

DRUGS (4)
  1. EPIRUBICIN [Suspect]
     Active Substance: EPIRUBICIN
     Indication: INVASIVE BREAST CARCINOMA
  2. ENDOXAN 200 MG PULBERE PENTRU SOLUTIE PERFUZABILA/INJECTABILA [Suspect]
     Active Substance: CYCLOPHOSPHAMIDE
     Indication: INVASIVE BREAST CARCINOMA
  3. ENDOXAN 200 MG PULBERE PENTRU SOLUTIE PERFUZABILA/INJECTABILA [Suspect]
     Active Substance: CYCLOPHOSPHAMIDE
     Indication: BREAST CANCER STAGE III
     Dosage: 2 CYCES
     Route: 065
  4. EPIRUBICIN [Suspect]
     Active Substance: EPIRUBICIN
     Indication: BREAST CANCER STAGE III
     Dosage: 2 CYCLES; 100 MG/M2
     Route: 065

REACTIONS (12)
  - Cardiac arrest [Fatal]
  - Hypotension [Fatal]
  - Hypokalaemia [Unknown]
  - Electrolyte imbalance [Fatal]
  - Leukopenia [Unknown]
  - Metabolic acidosis [Fatal]
  - Pancreatitis acute [Fatal]
  - Septic shock [Fatal]
  - Bradycardia [Fatal]
  - Neutropenia [Unknown]
  - Clostridium difficile infection [Unknown]
  - Acute kidney injury [Fatal]
